FAERS Safety Report 10047017 (Version 1)
Quarter: 2014Q1

REPORT INFORMATION
  Report Type: Spontaneous
  Country: US (occurrence: US)
  Receive Date: 20140331
  Receipt Date: 20140331
  Transmission Date: 20141002
  Serious: Yes (Hospitalization)
  Sender: FDA-Public Use
  Company Number: US-BEH-2014041318

PATIENT
  Age: 55 Year
  Sex: Male

DRUGS (2)
  1. ZEMAIRA [Suspect]
     Indication: ALPHA-1 ANTI-TRYPSIN DEFICIENCY
     Dates: start: 20131023
  2. STEROID SHOTS [Suspect]

REACTIONS (4)
  - Sepsis [Recovered/Resolved]
  - Diabetes mellitus [Recovered/Resolved]
  - Convulsion [Recovered/Resolved]
  - Pneumonia [Recovered/Resolved]
